FAERS Safety Report 22389241 (Version 1)
Quarter: 2023Q2

REPORT INFORMATION
  Report Type: Report from Study
  Country: IN (occurrence: None)
  Receive Date: 20230531
  Receipt Date: 20230531
  Transmission Date: 20230721
  Serious: Yes (Death)
  Sender: FDA-Public Use
  Company Number: 2023A123757

PATIENT
  Age: 48 Year
  Sex: Male

DRUGS (1)
  1. TAGRISSO [Suspect]
     Active Substance: OSIMERTINIB
     Indication: Metastatic neoplasm
     Dosage: 80.0MG ONCE/SINGLE ADMINISTRATION
     Route: 048

REACTIONS (2)
  - Infection [Fatal]
  - Pyrexia [Fatal]
